FAERS Safety Report 4991713-1 (Version None)
Quarter: 2006Q2

REPORT INFORMATION
  Report Type: 
  Country: None (occurrence: None)
  Receive Date: 20060504
  Receipt Date: 20060424
  Transmission Date: 20061013
  Serious: Yes (Disabling, Congenital Anomaly)
  Sender: FDA-Public Use
  Company Number: FR-GLAXOSMITHKLINE-B0421239A

PATIENT
  Weight: 2.6 kg

DRUGS (4)
  1. RETROVIR [Suspect]
     Indication: HIV INFECTION
     Dates: end: 20031010
  2. COMBIVIR [Suspect]
     Indication: HIV INFECTION
     Dates: end: 20031010
  3. RETROVIR [Suspect]
     Dates: start: 20031010, end: 20031010
  4. VIRACEPT [Suspect]
     Indication: HIV INFECTION
     Dates: end: 20031010

REACTIONS (2)
  - CONGENITAL NOSE MALFORMATION [None]
  - DRUG EXPOSURE DURING PREGNANCY [None]
